FAERS Safety Report 18920575 (Version 1)
Quarter: 2021Q1

REPORT INFORMATION
  Report Type: Spontaneous
  Country: US (occurrence: US)
  Receive Date: 20210222
  Receipt Date: 20210222
  Transmission Date: 20210420
  Serious: No
  Sender: FDA-Public Use
  Company Number: NVSC2021US041070

PATIENT

DRUGS (1)
  1. PIQRAY [Suspect]
     Active Substance: ALPELISIB
     Indication: TRIPLE NEGATIVE BREAST CANCER
     Route: 065

REACTIONS (3)
  - Alopecia [Unknown]
  - Oedema [Unknown]
  - Rash [Unknown]
